FAERS Safety Report 8373581 (Version 2)
Quarter: 2013Q1

REPORT INFORMATION
  Report Type: Report from Study
  Country: US (occurrence: US)
  Receive Date: 20120128
  Receipt Date: 20130131
  Transmission Date: 20140127
  Serious: No
  Sender: FDA-Public Use
  Company Number: US-ABBOTT-11P-163-0702199-00

PATIENT
  Sex: Male
  Weight: 95.34 kg

DRUGS (10)
  1. HUMIRA 40 MG/ 0.8 ML PRE-FILLED SYRINGE [Suspect]
     Indication: PSORIASIS
     Route: 058
     Dates: start: 2009, end: 201005
  2. HUMIRA 40 MG/0.8 ML PEN [Suspect]
     Indication: PSORIASIS
     Dosage: 1 PEN EVERY 14 - 16 DAYS
     Route: 058
     Dates: start: 201103
  3. HUMIRA 40 MG/0.8 ML PEN [Suspect]
     Route: 058
  4. LOTENSIN [Concomitant]
     Indication: HYPERTENSION
     Dosage: GENERIC
  5. LIPITOR [Concomitant]
     Indication: BLOOD CHOLESTEROL INCREASED
  6. ASA [Concomitant]
     Indication: PROPHYLAXIS
  7. AMLODIPINE [Concomitant]
     Indication: BLOOD PRESSURE
  8. BENAZEPRIL [Concomitant]
     Indication: BLOOD PRESSURE
  9. LISINOPRIL [Concomitant]
     Indication: BLOOD PRESSURE
  10. TIMOLOL [Concomitant]
     Indication: INTRAOCULAR PRESSURE DECREASED
     Dosage: EYE DROPS

REACTIONS (4)
  - Paranasal sinus hypersecretion [Recovered/Resolved]
  - Psoriasis [Recovered/Resolved]
  - Upper respiratory tract infection [Recovered/Resolved]
  - Psoriasis [Unknown]
